FAERS Safety Report 7701132-2 (Version None)
Quarter: 2011Q3

REPORT INFORMATION
  Report Type: 
  Country: None (occurrence: None)
  Receive Date: 20110819
  Receipt Date: 20110819
  Transmission Date: 20111222
  Serious: Yes (Hospitalization)
  Sender: FDA-Public Use
  Company Number: None

PATIENT
  Age: 53 Year
  Sex: Male

DRUGS (1)
  1. INCIVEK [Suspect]
     Dosage: INCIVEK TID PO
     Route: 048
     Dates: start: 20110720, end: 20110816

REACTIONS (1)
  - GAS POISONING [None]
